FAERS Safety Report 9610834 (Version 2)
Quarter: 2013Q4

REPORT INFORMATION
  Report Type: Spontaneous
  Country: US (occurrence: US)
  Receive Date: 20131009
  Receipt Date: 20131028
  Transmission Date: 20140711
  Serious: No
  Sender: FDA-Public Use
  Company Number: US-PFIZER INC-2013285626

PATIENT
  Age: 62 Year
  Sex: Male
  Weight: 81.63 kg

DRUGS (1)
  1. CAVERJECT [Suspect]
     Indication: ERECTILE DYSFUNCTION
     Dosage: 20 UG, MONTHLY
     Dates: start: 201101

REACTIONS (1)
  - Drug ineffective [Unknown]
